FAERS Safety Report 15159606 (Version 1)
Quarter: 2018Q3

REPORT INFORMATION
  Report Type: Spontaneous
  Country: US (occurrence: US)
  Receive Date: 20180718
  Receipt Date: 20180718
  Transmission Date: 20181010
  Serious: Yes (Other)
  Sender: FDA-Public Use
  Company Number: US-009507513-1807USA007014

PATIENT

DRUGS (8)
  1. UBIDECARENONE [Suspect]
     Active Substance: UBIDECARENONE
  2. PLAVIX [Suspect]
     Active Substance: CLOPIDOGREL BISULFATE
  3. PLENDIL [Suspect]
     Active Substance: FELODIPINE
     Route: 048
  4. OMEGA?3 MARINE TRIGLYCERIDES [Suspect]
     Active Substance: FISH OIL
  5. ZETIA [Suspect]
     Active Substance: EZETIMIBE
     Route: 048
  6. ALTACE [Suspect]
     Active Substance: RAMIPRIL
  7. PRALUENT [Suspect]
     Active Substance: ALIROCUMAB
     Dosage: UNK
     Dates: start: 201803
  8. FLAXSEED [Suspect]
     Active Substance: FLAX SEED

REACTIONS (2)
  - Stent placement [Unknown]
  - Thrombosis [Unknown]

NARRATIVE: CASE EVENT DATE: 2018
